FAERS Safety Report 10422270 (Version 1)
Quarter: 2014Q3

REPORT INFORMATION
  Report Type: Spontaneous
  Country: US (occurrence: US)
  Receive Date: 20140901
  Receipt Date: 20140901
  Transmission Date: 20150326
  Serious: Yes (Hospitalization, Other)
  Sender: FDA-Public Use
  Company Number: US-ELI_LILLY_AND_COMPANY-US201408007936

PATIENT
  Sex: Male

DRUGS (4)
  1. ZYPREXA [Suspect]
     Active Substance: OLANZAPINE
     Indication: LOGORRHOEA
  2. ASPIRIN. [Concomitant]
     Active Substance: ASPIRIN
  3. ZYPREXA [Suspect]
     Active Substance: OLANZAPINE
     Indication: PSYCHOTIC DISORDER
     Dosage: 15 MG, BID
     Route: 065
     Dates: start: 201408
  4. TEGRETOL [Concomitant]
     Active Substance: CARBAMAZEPINE

REACTIONS (7)
  - Prescribed overdose [Unknown]
  - Myocardial infarction [Unknown]
  - Anger [Recovered/Resolved]
  - Atrial fibrillation [Unknown]
  - Fear [Recovered/Resolved]
  - Gait disturbance [Unknown]
  - Muscle tightness [Unknown]
